FAERS Safety Report 17559254 (Version 1)
Quarter: 2020Q1

REPORT INFORMATION
  Report Type: Spontaneous
  Country: GB (occurrence: GB)
  Receive Date: 20200319
  Receipt Date: 20200319
  Transmission Date: 20200409
  Serious: Yes (Other)
  Sender: FDA-Public Use
  Company Number: GB-ACCORD-176244

PATIENT
  Age: 31 Year
  Sex: Male
  Weight: 98 kg

DRUGS (2)
  1. SERTRALINE [Suspect]
     Active Substance: SERTRALINE HYDROCHLORIDE
     Indication: ANXIETY
     Route: 048
     Dates: start: 20200101
  2. OMEPRAZOLE. [Concomitant]
     Active Substance: OMEPRAZOLE

REACTIONS (1)
  - Anorgasmia [Not Recovered/Not Resolved]

NARRATIVE: CASE EVENT DATE: 20200205
